FAERS Safety Report 18630256 (Version 4)
Quarter: 2024Q2

REPORT INFORMATION
  Report Type: Spontaneous
  Country: AT (occurrence: AT)
  Receive Date: 20201217
  Receipt Date: 20240521
  Transmission Date: 20240716
  Serious: Yes (Other)
  Sender: FDA-Public Use
  Company Number: AT-002147023-NVSC2020AT333071

PATIENT
  Age: 64 Year
  Sex: Male

DRUGS (24)
  1. GEMCITABINE HYDROCHLORIDE [Suspect]
     Active Substance: GEMCITABINE HYDROCHLORIDE
     Indication: Diffuse large B-cell lymphoma
     Dosage: UNK UNK, CYCLICAL (4 CYCLES R-GDP)
     Route: 065
     Dates: start: 201812
  2. RITUXIMAB [Suspect]
     Active Substance: RITUXIMAB
     Indication: Diffuse large B-cell lymphoma
     Dosage: UNK UNK, CYCLICAL 96 CYCLES R-CHOP)
     Route: 065
     Dates: start: 201611, end: 201704
  3. RITUXIMAB [Suspect]
     Active Substance: RITUXIMAB
     Dosage: UNK UNK, CYCLICAL (4 CYCLES WITH R-GDP)
     Route: 065
     Dates: start: 201812
  4. RITUXIMAB [Suspect]
     Active Substance: RITUXIMAB
     Dosage: UNK UNK, OTHER (BRIDGING THERAPY)
     Route: 065
     Dates: start: 20191205
  5. RITUXIMAB [Suspect]
     Active Substance: RITUXIMAB
     Dosage: UNK UNK, CYCLICAL (4 CYCLES RITUXIMAB/POLATUZUMAB)
     Route: 065
     Dates: start: 202005, end: 202007
  6. RITUXIMAB [Suspect]
     Active Substance: RITUXIMAB
     Dosage: UNK UNK, CYCLICAL (2 ADDITIONAL CYCLES R-POLA)
     Route: 065
     Dates: start: 202009, end: 202010
  7. DOXORUBICIN [Suspect]
     Active Substance: DOXORUBICIN
     Indication: Diffuse large B-cell lymphoma
     Dosage: UNK UNK, CYCLICAL (6 CYCLES R-CHOP)
     Route: 065
     Dates: start: 201611, end: 201704
  8. CISPLATIN [Suspect]
     Active Substance: CISPLATIN
     Indication: Diffuse large B-cell lymphoma
     Dosage: UNK UNK, CYCLICAL (4 CYCLES R-GDP)
     Route: 065
     Dates: start: 201812
  9. CARMUSTINE [Suspect]
     Active Substance: CARMUSTINE
     Indication: Diffuse large B-cell lymphoma
     Dosage: UNK, OTHER (HIGH DOSE BEAM)
     Route: 065
     Dates: start: 201903
  10. ETOPOSIDE [Suspect]
     Active Substance: ETOPOSIDE
     Indication: Diffuse large B-cell lymphoma
     Dosage: UNK UNK, OTHER (HIGH DOSE BEAM)
     Route: 065
     Dates: start: 201903
  11. DEXAMETHASONE [Suspect]
     Active Substance: DEXAMETHASONE
     Indication: Diffuse large B-cell lymphoma
     Dosage: UNK UNK, CYCLICAL (4 CYCLES R-GDP)
     Route: 065
     Dates: start: 201812
  12. PREDNISONE [Suspect]
     Active Substance: PREDNISONE
     Indication: Diffuse large B-cell lymphoma
     Dosage: UNK UNK, CYCLICAL (6 CYCLES R-CHOP)
     Route: 065
     Dates: start: 201611, end: 201704
  13. FLUDARABINE [Suspect]
     Active Substance: FLUDARABINE PHOSPHATE
     Indication: Lymphocyte adoptive therapy
     Dosage: UNK UNK, UNKNOWN
     Route: 065
     Dates: start: 20191223, end: 20191224
  14. BENDAMUSTINE [Suspect]
     Active Substance: BENDAMUSTINE
     Indication: Diffuse large B-cell lymphoma
     Dosage: UNK UNK, CYCLICAL (3 CYCLES)
     Route: 065
     Dates: start: 201809
  15. BENDAMUSTINE [Suspect]
     Active Substance: BENDAMUSTINE
     Dosage: UNK UNK, OTHER (BRIDGING THERAPY)
     Route: 065
     Dates: start: 20191205
  16. CYCLOPHOSPHAMIDE [Suspect]
     Active Substance: CYCLOPHOSPHAMIDE
     Indication: Lymphocyte adoptive therapy
     Dosage: UNK UNK, CYCLICAL (6 CYCLES R-CHOP)
     Route: 065
     Dates: start: 201611, end: 201704
  17. CYCLOPHOSPHAMIDE [Suspect]
     Active Substance: CYCLOPHOSPHAMIDE
     Indication: Diffuse large B-cell lymphoma
     Dosage: UNK UNK, OTHER ((LYMPHODEPLETING CHEMOTHERAPY)
     Route: 065
     Dates: start: 20191223, end: 20191224
  18. MELPHALAN [Suspect]
     Active Substance: MELPHALAN
     Indication: Diffuse large B-cell lymphoma
     Dosage: UNK UNK, OTHER (HIGH DOSE BEAM)
     Route: 065
     Dates: start: 201903
  19. OBINUTUZUMAB [Suspect]
     Active Substance: OBINUTUZUMAB
     Indication: Diffuse large B-cell lymphoma
     Dosage: UNK UNK, CYCLICAL (3 CYCLES)
     Route: 065
     Dates: start: 201809
  20. VINCRISTINE [Suspect]
     Active Substance: VINCRISTINE
     Indication: Diffuse large B-cell lymphoma
     Dosage: UNK UNK, CYCLICAL (6 CYCLES R-CHOP)
     Route: 065
     Dates: start: 201611, end: 201704
  21. CYTARABINE [Suspect]
     Active Substance: CYTARABINE
     Indication: Diffuse large B-cell lymphoma
     Dosage: UNK UNK, OTHER (HIGH DOSE BEAM)
     Route: 065
     Dates: start: 201903
  22. POLATUZUMAB VEDOTIN [Suspect]
     Active Substance: POLATUZUMAB VEDOTIN
     Indication: Diffuse large B-cell lymphoma
     Dosage: UNK, OTHER (BRIDGING THERAPY)
     Route: 065
     Dates: start: 20191205
  23. POLATUZUMAB VEDOTIN [Suspect]
     Active Substance: POLATUZUMAB VEDOTIN
     Dosage: UNK UNK, CYCLICAL  (4 CYCLES RITUXIMAB/POLATUZUMAB)
     Route: 065
     Dates: start: 202005, end: 202007
  24. POLATUZUMAB VEDOTIN [Suspect]
     Active Substance: POLATUZUMAB VEDOTIN
     Dosage: UNK UNK, CYCLICAL  (2 ADDITIONAL CYCLES R-POLA)
     Route: 065
     Dates: start: 202009, end: 202010

REACTIONS (3)
  - Myelosuppression [Unknown]
  - Malignant neoplasm progression [Unknown]
  - Off label use [Unknown]

NARRATIVE: CASE EVENT DATE: 20200803
